FAERS Safety Report 7220109-7 (Version None)
Quarter: 2011Q1

REPORT INFORMATION
  Report Type: 
  Country: None (occurrence: None)
  Receive Date: 20110111
  Receipt Date: 20110105
  Transmission Date: 20110831
  Serious: Yes (Other)
  Sender: FDA-Public Use
  Company Number: B0692932A

PATIENT
  Age: 47 Year
  Sex: Male

DRUGS (1)
  1. AUGMENTIN '125' [Suspect]
     Route: 048
     Dates: start: 20100903, end: 20100909

REACTIONS (3)
  - HEPATIC ENZYME INCREASED [None]
  - RASH ERYTHEMATOUS [None]
  - URTICARIA [None]
